FAERS Safety Report 15587135 (Version 1)
Quarter: 2018Q4

REPORT INFORMATION
  Report Type: Spontaneous
  Country: US (occurrence: US)
  Receive Date: 20181105
  Receipt Date: 20181105
  Transmission Date: 20190205
  Serious: Yes (Life-Threatening)
  Sender: FDA-Public Use
  Company Number: None

PATIENT
  Age: 77 Year
  Sex: Female
  Weight: 65.77 kg

DRUGS (1)
  1. DORZOLAMIDE HCL 0.2% SOLUTION [Suspect]
     Active Substance: DORZOLAMIDE HYDROCHLORIDE
     Route: 047
     Dates: start: 201806, end: 201810

REACTIONS (6)
  - Instillation site pain [None]
  - Cough [None]
  - Dizziness [None]
  - Headache [None]
  - Throat irritation [None]
  - Vision blurred [None]
